FAERS Safety Report 11619257 (Version 1)
Quarter: 2015Q4

REPORT INFORMATION
  Report Type: Spontaneous
  Country: US (occurrence: US)
  Receive Date: 20151012
  Receipt Date: 20151012
  Transmission Date: 20160304
  Serious: No
  Sender: FDA-Public Use
  Company Number: US-BIOGENIDEC-2015BI136118

PATIENT
  Sex: Female

DRUGS (1)
  1. AVONEX [Suspect]
     Active Substance: INTERFERON BETA-1A
     Indication: MULTIPLE SCLEROSIS

REACTIONS (7)
  - Mobility decreased [Unknown]
  - Feeling abnormal [Unknown]
  - Aphasia [Unknown]
  - Influenza [Unknown]
  - Nervousness [Unknown]
  - Abasia [Unknown]
  - Memory impairment [Unknown]
